FAERS Safety Report 6124324-5 (Version None)
Quarter: 2009Q1

REPORT INFORMATION
  Report Type: 
  Country: None (occurrence: None)
  Receive Date: 20090319
  Receipt Date: 20090309
  Transmission Date: 20090719
  Serious: Yes (Hospitalization, Other)
  Sender: FDA-Public Use
  Company Number: US-ABBOTT-09P-163-0561251-00

PATIENT
  Sex: Female
  Weight: 96.248 kg

DRUGS (9)
  1. HUMIRA [Suspect]
     Indication: RHEUMATOID ARTHRITIS
     Route: 058
  2. LANTUS [Concomitant]
     Indication: DIABETES MELLITUS
     Route: 058
  3. PREVACID [Concomitant]
     Indication: DRUG USE FOR UNKNOWN INDICATION
  4. GLIPIZIDE [Concomitant]
     Indication: DRUG USE FOR UNKNOWN INDICATION
  5. ARAVA [Concomitant]
     Indication: DRUG USE FOR UNKNOWN INDICATION
  6. PREDNISONE [Concomitant]
     Indication: DRUG USE FOR UNKNOWN INDICATION
  7. ZOLOFT [Concomitant]
     Indication: DRUG USE FOR UNKNOWN INDICATION
  8. LOTREL [Concomitant]
     Indication: DRUG USE FOR UNKNOWN INDICATION
  9. LIPITOR [Concomitant]
     Indication: DRUG USE FOR UNKNOWN INDICATION

REACTIONS (12)
  - BACK PAIN [None]
  - CROHN'S DISEASE [None]
  - DIARRHOEA [None]
  - DIVERTICULITIS [None]
  - INJECTION SITE IRRITATION [None]
  - PAIN [None]
  - PNEUMONIA [None]
  - SPINAL FRACTURE [None]
  - VITAMIN A DECREASED [None]
  - VITAMIN E DECREASED [None]
  - VOMITING [None]
  - WEIGHT DECREASED [None]
